FAERS Safety Report 4550573-3 (Version None)
Quarter: 2005Q1

REPORT INFORMATION
  Report Type: 
  Country: None (occurrence: None)
  Receive Date: 20050110
  Receipt Date: 20041228
  Transmission Date: 20050727
  Serious: Yes (Other)
  Sender: FDA-Public Use
  Company Number: 2004-BP-14442RO

PATIENT
  Age: 58 Year
  Sex: Male

DRUGS (1)
  1. METHOTREXATE [Suspect]
     Indication: ARTHRITIS

REACTIONS (2)
  - B-CELL LYMPHOMA [None]
  - EPSTEIN-BARR VIRUS SEROLOGY [None]
